FAERS Safety Report 8947749 (Version 1)
Quarter: 2012Q4

REPORT INFORMATION
  Report Type: Spontaneous
  Country: GR (occurrence: None)
  Receive Date: 20121127
  Receipt Date: 20121127
  Transmission Date: 20130627
  Serious: Yes (Hospitalization, Other)
  Sender: FDA-Public Use
  Company Number: NSR_00721_2012

PATIENT
  Age: 12 Year
  Sex: Female

DRUGS (3)
  1. BACLOFEN [Suspect]
     Indication: SPASTIC DIPLEGIA
     Route: 039
     Dates: end: 20071220
  2. BACLOFEN [Suspect]
     Indication: SPASTIC DIPLEGIA
     Route: 039
  3. BACLOFEN [Suspect]
     Indication: SPASTIC DIPLEGIA
     Route: 039

REACTIONS (5)
  - Overdose [None]
  - Grand mal convulsion [None]
  - Device occlusion [None]
  - Catheter removal [None]
  - Medical device complication [None]
